FAERS Safety Report 12512002 (Version 4)
Quarter: 2020Q1

REPORT INFORMATION
  Report Type: Spontaneous
  Country: US (occurrence: US)
  Receive Date: 20160630
  Receipt Date: 20200131
  Transmission Date: 20200409
  Serious: Yes (Death, Hospitalization, Other)
  Sender: FDA-Public Use
  Company Number: US-JNJFOC-20160517500

PATIENT
  Age: 81 Year
  Sex: Male
  Weight: 84.9 kg

DRUGS (5)
  1. XARELTO [Suspect]
     Active Substance: RIVAROXABAN
     Dosage: 15 MG; 20 MG
     Route: 048
     Dates: start: 201503, end: 201512
  2. XARELTO [Suspect]
     Active Substance: RIVAROXABAN
     Dosage: 15 MG; 20 MG
     Route: 048
     Dates: start: 201512, end: 20160108
  3. ASPIRIN. [Suspect]
     Active Substance: ASPIRIN
     Indication: PRODUCT USED FOR UNKNOWN INDICATION
     Route: 048
     Dates: end: 20160108
  4. XARELTO [Suspect]
     Active Substance: RIVAROXABAN
     Route: 048
  5. XARELTO [Suspect]
     Active Substance: RIVAROXABAN
     Indication: ANTICOAGULANT THERAPY
     Dosage: 15 MG; 20 MG
     Route: 048
     Dates: start: 201301, end: 2015

REACTIONS (2)
  - Gastrointestinal haemorrhage [Unknown]
  - Internal haemorrhage [Unknown]

NARRATIVE: CASE EVENT DATE: 20151101
